FAERS Safety Report 9160313 (Version 2)
Quarter: 2013Q1

REPORT INFORMATION
  Report Type: Spontaneous
  Country: DK (occurrence: None)
  Receive Date: 20130214
  Receipt Date: 20130226
  Transmission Date: 20140127
  Serious: Yes (Life-Threatening, Hospitalization)
  Sender: FDA-Public Use
  Company Number: 2013MA001085

PATIENT
  Age: 63 Year
  Sex: Male

DRUGS (11)
  1. BUTALBITAL, ASPIRIN AND CAFFEINE TABLETS USP, 50 MG/325 MG/40 MG (PUREPAC) (BUTALBITAL W/ASPIRIN,CAFFEINE) [Suspect]
     Route: 048
  2. WARFARIN (WARFARIN) [Suspect]
     Route: 048
  3. CLOPIDOGREL (CLOPIDOGREL) [Suspect]
     Route: 048
  4. DIGOXIN [Concomitant]
  5. EPLERENONE [Concomitant]
  6. FUROSEMIDE [Concomitant]
  7. GLYCERYL TRINITRATE [Concomitant]
  8. NIQUITIN [Concomitant]
  9. SIMVASTATIN [Concomitant]
  10. FERROUS SULPHATE [Concomitant]
  11. BISOPROLOL [Concomitant]

REACTIONS (2)
  - Haemorrhage [None]
  - International normalised ratio increased [None]
